FAERS Safety Report 12118624 (Version 2)
Quarter: 2016Q1

REPORT INFORMATION
  Report Type: Spontaneous
  Country: CH (occurrence: CH)
  Receive Date: 20160226
  Receipt Date: 20160304
  Transmission Date: 20160526
  Serious: Yes (Disabling, Other)
  Sender: FDA-Public Use
  Company Number: CH-009507513-1602CHE007978

PATIENT
  Age: 35 Year
  Sex: Female

DRUGS (1)
  1. IMPLANON [Suspect]
     Active Substance: ETONOGESTREL
     Indication: CONTRACEPTION
     Dosage: 3RD IMPLANT
     Route: 059
     Dates: start: 201203, end: 20160224

REACTIONS (7)
  - Peripheral nerve paresis [Not Recovered/Not Resolved]
  - Complication associated with device [Recovered/Resolved]
  - Radial nerve palsy [Not Recovered/Not Resolved]
  - General anaesthesia [Recovered/Resolved]
  - Device deployment issue [Recovered/Resolved]
  - Surgery [Recovered/Resolved]
  - Device difficult to use [Recovered/Resolved]

NARRATIVE: CASE EVENT DATE: 201602
